FAERS Safety Report 4471974-8 (Version None)
Quarter: 2004Q4

REPORT INFORMATION
  Report Type: 
  Country: None (occurrence: None)
  Receive Date: 20041007
  Receipt Date: 20040922
  Transmission Date: 20050328
  Serious: Yes (Other)
  Sender: FDA-Public Use
  Company Number: A-CH2004-07486

PATIENT
  Age: 20 Month
  Sex: 0
  Weight: 12.5 kg

DRUGS (4)
  1. TRACLEER [Suspect]
     Indication: PULMONARY HYPERTENSION
     Dosage: 37.5 MG, QD, ORAL
     Route: 048
  2. BUSULFAN [Concomitant]
  3. URSOLVAN-200 (URSODEOXYCHOLIC ACID) [Concomitant]
  4. BACTRIM [Concomitant]

REACTIONS (5)
  - BLOOD SODIUM INCREASED [None]
  - DEHYDRATION [None]
  - DIARRHOEA [None]
  - GASTROENTERITIS VIRAL [None]
  - VIRUS SEROLOGY TEST POSITIVE [None]
